FAERS Safety Report 7229200-2 (Version None)
Quarter: 2011Q1

REPORT INFORMATION
  Report Type: 
  Country: None (occurrence: None)
  Receive Date: 20110117
  Receipt Date: 20110104
  Transmission Date: 20110831
  Serious: Yes (Hospitalization)
  Sender: FDA-Public Use
  Company Number: US-CELGENEUS-163-21880-11010501

PATIENT

DRUGS (2)
  1. REVLIMID [Suspect]
     Route: 048
  2. DEXAMETHASONE [Suspect]
     Route: 065

REACTIONS (3)
  - ADVERSE DRUG REACTION [None]
  - LUNG INFILTRATION [None]
  - HYPOXIA [None]
